FAERS Safety Report 5729038-9 (Version None)
Quarter: 2008Q2

REPORT INFORMATION
  Report Type: 
  Country: None (occurrence: None)
  Receive Date: 20080505
  Receipt Date: 20080505
  Transmission Date: 20081010
  Serious: Yes (Death)
  Sender: FDA-Public Use
  Company Number: None

PATIENT

DRUGS (2)
  1. DURAGESIC-75 [Suspect]
     Indication: PAIN
     Dosage: 75MG/H  Q72H  SKIN
     Route: 062
     Dates: start: 20071101, end: 20080101
  2. ERBITUX [Suspect]
     Indication: HEAD AND NECK CANCER
     Dosage: 426MG WEEKLY IV
     Route: 042
     Dates: start: 20071114, end: 20071227

REACTIONS (1)
  - LOSS OF CONSCIOUSNESS [None]
